FAERS Safety Report 9263372 (Version 1)
Quarter: 2013Q2

REPORT INFORMATION
  Report Type: Spontaneous
  Country: US (occurrence: None)
  Receive Date: 20130429
  Receipt Date: 20130429
  Transmission Date: 20140414
  Serious: No
  Sender: FDA-Public Use
  Company Number: None

PATIENT
  Age: 61 Year
  Sex: 0
  Weight: 136.08 kg

DRUGS (1)
  1. TAMSULOSIN [Suspect]
     Dosage: 0.4 MG CAP 2 X / DAY ORAL
     Route: 048

REACTIONS (1)
  - Male orgasmic disorder [None]
